FAERS Safety Report 17184662 (Version 2)
Quarter: 2021Q4

REPORT INFORMATION
  Report Type: Report from Study
  Country: KR (occurrence: KR)
  Receive Date: 20191220
  Receipt Date: 20211101
  Transmission Date: 20220303
  Serious: Yes (Life-Threatening)
  Sender: FDA-Public Use
  Company Number: KR-GLAXOSMITHKLINE-KP2019TSO219524

PATIENT
  Age: 74 Year
  Sex: Male

DRUGS (14)
  1. ATEZOLIZUMAB [Suspect]
     Active Substance: ATEZOLIZUMAB
     Indication: Transitional cell carcinoma
     Dosage: 1200 MG
     Route: 042
     Dates: start: 20191017, end: 20191017
  2. ATEZOLIZUMAB [Suspect]
     Active Substance: ATEZOLIZUMAB
     Dosage: UNK
     Route: 042
     Dates: start: 20191106, end: 20191106
  3. NIRAPARIB [Suspect]
     Active Substance: NIRAPARIB
     Indication: Transitional cell carcinoma
     Dosage: DATE OF MOST RECENT DOSE OF NIRAPARIB: 24/NOV/2019 (200 MG,1 IN 1 D
     Route: 048
     Dates: start: 20191017
  4. NIRAPARIB [Suspect]
     Active Substance: NIRAPARIB
     Dosage: UNK
     Route: 048
     Dates: start: 20191124
  5. LACTULOSE [Concomitant]
     Active Substance: LACTULOSE
     Indication: Constipation
     Dosage: 15 MG AS NEEDED
     Route: 048
  6. PLAVIX [Concomitant]
     Active Substance: CLOPIDOGREL BISULFATE
     Indication: Atrial fibrillation
     Dosage: 2 MONTHS
     Route: 048
  7. ASPIRIN [Concomitant]
     Active Substance: ASPIRIN
     Indication: Atrial fibrillation
     Dosage: 28 DAYS
     Route: 048
  8. PENIRAMIN [Concomitant]
     Indication: Product used for unknown indication
     Dosage: 2 MG
     Route: 042
     Dates: start: 20191125, end: 20191125
  9. PENIRAMIN [Concomitant]
     Dosage: 2 MG, OTHER
     Route: 042
     Dates: start: 20191128, end: 20191128
  10. PENIRAMIN [Concomitant]
     Dosage: 2 MG, OTHER
     Route: 042
     Dates: start: 20191202, end: 20191202
  11. HARTMAN-DEX [Concomitant]
     Indication: Product used for unknown indication
     Dosage: 500 ML
     Route: 042
     Dates: start: 20191125, end: 20191125
  12. HUMAN RED BLOOD CELL [Concomitant]
     Active Substance: HUMAN RED BLOOD CELL
     Indication: Anaemia
     Dosage: 2 OTHER UNITS
     Route: 042
     Dates: start: 20191128, end: 20191128
  13. FOLIC ACID [Concomitant]
     Active Substance: FOLIC ACID
     Indication: Anaemia
     Dosage: 1 MG, 1DAY
     Route: 048
     Dates: start: 20191205
  14. PYRIDOXINE [Concomitant]
     Active Substance: PYRIDOXINE
     Indication: Anaemia
     Dosage: 50 MG, QD
     Route: 048
     Dates: start: 20191205

REACTIONS (1)
  - Platelet count decreased [Recovered/Resolved]

NARRATIVE: CASE EVENT DATE: 20191125
